FAERS Safety Report 6301776-9 (Version None)
Quarter: 2009Q3

REPORT INFORMATION
  Report Type: 
  Country: None (occurrence: None)
  Receive Date: 20090807
  Receipt Date: 20090805
  Transmission Date: 20100115
  Serious: Yes (Hospitalization)
  Sender: FDA-Public Use
  Company Number: US-MERCK-0907USA05414

PATIENT
  Age: 36 Month
  Sex: Male

DRUGS (4)
  1. PRIMAXIN [Suspect]
     Indication: PERITONITIS
     Route: 042
     Dates: start: 20090728
  2. PRIMAXIN [Suspect]
     Route: 042
     Dates: start: 20090701
  3. HEPARIN [Concomitant]
     Route: 065
  4. DIANEAL [Concomitant]
     Route: 065

REACTIONS (1)
  - BRADYCARDIA [None]
